FAERS Safety Report 12319287 (Version 1)
Quarter: 2016Q2

REPORT INFORMATION
  Report Type: Spontaneous
  Country: US (occurrence: US)
  Receive Date: 20160429
  Receipt Date: 20160429
  Transmission Date: 20160815
  Serious: No
  Sender: FDA-Public Use
  Company Number: US-ROCHE-1598416

PATIENT
  Age: 64 Year
  Sex: Male

DRUGS (3)
  1. TYLENOL PM [Concomitant]
     Active Substance: ACETAMINOPHEN\DIPHENHYDRAMINE
  2. AVASTIN [Suspect]
     Active Substance: BEVACIZUMAB
     Indication: APATHY
     Dosage: LAST INJECTION
     Route: 065
     Dates: start: 201505
  3. AVASTIN [Suspect]
     Active Substance: BEVACIZUMAB
     Indication: MACULAR OEDEMA
     Dosage: TWO YEARS
     Route: 065

REACTIONS (4)
  - Diarrhoea [Unknown]
  - Eye disorder [Unknown]
  - Vitreous floaters [Recovered/Resolved]
  - Drug ineffective [Unknown]
